FAERS Safety Report 16689219 (Version 1)
Quarter: 2019Q3

REPORT INFORMATION
  Report Type: Report from Study
  Country: FR (occurrence: FR)
  Receive Date: 20190809
  Receipt Date: 20190809
  Transmission Date: 20191004
  Serious: Yes (Other)
  Sender: FDA-Public Use
  Company Number: FR-GILEAD-2019-0422834

PATIENT
  Age: 65 Year
  Sex: Female

DRUGS (4)
  1. SOFOSBUVIR [Suspect]
     Active Substance: SOFOSBUVIR
     Indication: CHRONIC HEPATITIS C
     Route: 065
  2. CIBENZOLINE [Concomitant]
     Active Substance: CIFENLINE
  3. ASPIRIN 81 [Concomitant]
     Active Substance: ASPIRIN
  4. SIMEPREVIR [Suspect]
     Active Substance: SIMEPREVIR
     Indication: CHRONIC HEPATITIS C
     Route: 065

REACTIONS (3)
  - Palpitations [Not Recovered/Not Resolved]
  - Off label use [Unknown]
  - Ventricular extrasystoles [Unknown]
